FAERS Safety Report 10833584 (Version 2)
Quarter: 2015Q1

REPORT INFORMATION
  Report Type: Spontaneous
  Country: US (occurrence: US)
  Receive Date: 20150219
  Receipt Date: 20150225
  Transmission Date: 20150721
  Serious: Yes (Hospitalization)
  Sender: FDA-Public Use
  Company Number: US-BAYER-2015-023869

PATIENT
  Age: 14 Year
  Sex: Female

DRUGS (1)
  1. ROMILAR [Suspect]
     Active Substance: DEXTROMETHORPHAN HYDROBROMIDE

REACTIONS (7)
  - Serotonin syndrome [Recovered/Resolved]
  - Unresponsive to stimuli [Recovered/Resolved]
  - Hyperthermia [Recovered/Resolved]
  - Seizure [Recovered/Resolved]
  - Tachycardia [Recovered/Resolved]
  - Drug abuse [None]
  - Agitation [Recovered/Resolved]
